FAERS Safety Report 5913165-7 (Version None)
Quarter: 2008Q4

REPORT INFORMATION
  Report Type: 
  Country: None (occurrence: None)
  Receive Date: 20081009
  Receipt Date: 20080923
  Transmission Date: 20090506
  Serious: Yes (Life-Threatening, Hospitalization, Other)
  Sender: FDA-Public Use
  Company Number: US-JNJFOC-20070305835

PATIENT
  Sex: Male
  Weight: 67.5 kg

DRUGS (10)
  1. TYLENOL W/ CODEINE NO. 3 [Suspect]
     Indication: DRUG USE FOR UNKNOWN INDICATION
     Dates: start: 20070123, end: 20070124
  2. IMODIUM A-D [Suspect]
     Indication: DRUG USE FOR UNKNOWN INDICATION
  3. BUSCOPAN [Suspect]
     Indication: DRUG USE FOR UNKNOWN INDICATION
  4. IRINOTECAN HCL [Suspect]
     Indication: OESOPHAGEAL CARCINOMA
     Route: 042
  5. CISPLATIN [Suspect]
     Indication: OESOPHAGEAL CARCINOMA
     Route: 042
  6. KYTRIL [Concomitant]
     Route: 048
  7. KYTRIL [Concomitant]
     Route: 048
  8. DECADRON [Concomitant]
     Route: 048
  9. DECADRON [Concomitant]
     Route: 048
  10. ALTACE [Concomitant]
     Route: 048

REACTIONS (7)
  - ATRIAL FIBRILLATION [None]
  - CHRONIC OBSTRUCTIVE PULMONARY DISEASE [None]
  - DIARRHOEA [None]
  - FEBRILE NEUTROPENIA [None]
  - ILEUS [None]
  - TREMOR [None]
  - VENTRICULAR TACHYCARDIA [None]
